FAERS Safety Report 23997169 (Version 1)
Quarter: 2024Q2

REPORT INFORMATION
  Report Type: Report from Study
  Country: GR (occurrence: GR)
  Receive Date: 20240621
  Receipt Date: 20240621
  Transmission Date: 20240716
  Serious: Yes (Death, Life-Threatening, Hospitalization, Disabling, Other)
  Sender: FDA-Public Use
  Company Number: GR-ABBVIE-5764075

PATIENT
  Age: 79 Year
  Sex: Male
  Weight: 78 kg

DRUGS (21)
  1. VENETOCLAX [Suspect]
     Active Substance: VENETOCLAX
     Indication: Acute myeloid leukaemia
     Dosage: UNIT DOSE: 200 OF UNSPECIFIED UNITS
     Route: 048
     Dates: start: 20221229
  2. SOLVETAN [Concomitant]
     Indication: Pyrexia
     Dosage: TIME INTERVAL: 0.33333333 DAYS
     Route: 042
     Dates: start: 20230103, end: 20230106
  3. CEFIXIME [Concomitant]
     Active Substance: CEFIXIME
     Indication: Abdominal pain
     Route: 048
     Dates: start: 20221227, end: 20221230
  4. AVIBACTAM SODIUM\CEFTAZIDIME [Concomitant]
     Active Substance: AVIBACTAM SODIUM\CEFTAZIDIME
     Indication: Pyrexia
     Dosage: TIME INTERVAL: 0.33333333 DAYS
     Route: 042
  5. LINEZOLID [Concomitant]
     Active Substance: LINEZOLID
     Indication: Pyrexia
     Route: 042
  6. CEFIXIME [Concomitant]
     Active Substance: CEFIXIME
     Indication: Pyrexia
     Route: 048
     Dates: start: 20221227, end: 20221230
  7. PIPERACILLIN SODIUM\TAZOBACTAM SODIUM [Concomitant]
     Active Substance: PIPERACILLIN SODIUM\TAZOBACTAM SODIUM
     Indication: Pyrexia
     Route: 042
     Dates: start: 20221230, end: 20230103
  8. METFORMIN [Concomitant]
     Active Substance: METFORMIN HYDROCHLORIDE
     Indication: Type 2 diabetes mellitus
     Route: 048
  9. ROSUVASTATIN [Concomitant]
     Active Substance: ROSUVASTATIN
     Indication: Dyslipidaemia
     Route: 048
  10. PIPERACILLIN [Concomitant]
     Active Substance: PIPERACILLIN
     Indication: Pyrexia
     Dosage: TIME INTERVAL: 0.33333333 DAYS: UNIT DOSE: 4.5G
     Route: 042
  11. CEFTAZIDIME [Concomitant]
     Active Substance: CEFTAZIDIME
     Indication: Pyrexia
     Dosage: TIME INTERVAL: 0.33333333 DAYS
     Route: 042
  12. OMEPRAZOLE [Concomitant]
     Active Substance: DONEPEZIL HYDROCHLORIDE\OMEPRAZOLE\OMEPRAZOLE MAGNESIUM
     Indication: Gastrointestinal disorder prophylaxis
     Route: 048
     Dates: start: 20221028
  13. LEVOFLOXACIN [Concomitant]
     Active Substance: LEVOFLOXACIN
     Indication: Pyrexia
     Route: 048
     Dates: start: 20221227, end: 20221230
  14. AMIKACIN [Concomitant]
     Active Substance: AMIKACIN
     Indication: Pyrexia
     Route: 042
     Dates: start: 20230103, end: 20230106
  15. FLUCONAZOLE F [Concomitant]
     Indication: Antifungal prophylaxis
     Route: 048
     Dates: start: 20221028
  16. ACYCLOVIR [Concomitant]
     Active Substance: ACYCLOVIR
     Indication: Antiviral prophylaxis
     Route: 048
     Dates: start: 20221202
  17. ONDANSETRON [Concomitant]
     Active Substance: ONDANSETRON
     Indication: Vomiting
     Route: 048
     Dates: start: 20221028
  18. LEVOFLOXACIN [Concomitant]
     Active Substance: LEVOFLOXACIN
     Indication: Prophylactic chemotherapy
     Route: 048
     Dates: start: 20221028
  19. ALLOPURINOL [Concomitant]
     Active Substance: ALLOPURINOL
     Indication: Prophylaxis
     Route: 048
     Dates: start: 20221028
  20. VIDAZA [Suspect]
     Active Substance: AZACITIDINE
     Indication: Acute myeloid leukaemia
     Route: 058
     Dates: start: 20221031, end: 20230105
  21. DULAGLUTIDE [Concomitant]
     Active Substance: DULAGLUTIDE
     Indication: Type 2 diabetes mellitus
     Dosage: UNIT DOSE:1.5MG
     Route: 058

REACTIONS (7)
  - Septic shock [Fatal]
  - Hypotension [Not Recovered/Not Resolved]
  - White blood cell count increased [Not Recovered/Not Resolved]
  - Pyrexia [Not Recovered/Not Resolved]
  - Abdominal pain [Recovered/Resolved]
  - Disease progression [Not Recovered/Not Resolved]
  - Atelectasis [Unknown]

NARRATIVE: CASE EVENT DATE: 20221227
